FAERS Safety Report 6909372-7 (Version None)
Quarter: 2010Q3

REPORT INFORMATION
  Report Type: 
  Country: None (occurrence: None)
  Receive Date: 20100805
  Receipt Date: 20100729
  Transmission Date: 20110219
  Serious: Yes (Other)
  Sender: FDA-Public Use
  Company Number: US-RB-008216-10

PATIENT
  Age: 50 Year
  Sex: Male

DRUGS (1)
  1. SUBOXONE [Suspect]
     Indication: PRODUCT USED FOR UNKNOWN INDICATION
     Dosage: DOSING DETAILS UNKNOWN
     Route: 065

REACTIONS (10)
  - BACK PAIN [None]
  - CHEST PAIN [None]
  - FALL [None]
  - FATIGUE [None]
  - INSOMNIA [None]
  - MYOCARDIAL INFARCTION [None]
  - PAIN IN EXTREMITY [None]
  - RESTLESSNESS [None]
  - SOMNOLENCE [None]
  - STRESS [None]
